FAERS Safety Report 18353957 (Version 1)
Quarter: 2020Q4

REPORT INFORMATION
  Report Type: Spontaneous
  Country: CA (occurrence: CA)
  Receive Date: 20201006
  Receipt Date: 20201006
  Transmission Date: 20210114
  Serious: Yes (Hospitalization)
  Sender: FDA-Public Use
  Company Number: CA-BAXTER-2020BAX019630

PATIENT
  Sex: Female

DRUGS (1)
  1. BUPIVACAINE IN 8.25% DEXTROSE INJECTION USP [Suspect]
     Active Substance: BUPIVACAINE\DEXTROSE
     Indication: CAESAREAN SECTION
     Dosage: STRENGTH: 0.75 % 7.5 MG/ML 2 ML/AMPOULE  ?1 AMPOULE
     Route: 037
     Dates: start: 20200921, end: 20200921

REACTIONS (2)
  - Exposure during pregnancy [Unknown]
  - Drug ineffective [Unknown]

NARRATIVE: CASE EVENT DATE: 20200921
